FAERS Safety Report 7620229-9 (Version None)
Quarter: 2011Q3

REPORT INFORMATION
  Report Type: 
  Country: None (occurrence: None)
  Receive Date: 20110719
  Receipt Date: 20110706
  Transmission Date: 20111222
  Serious: Yes (Other)
  Sender: FDA-Public Use
  Company Number: PHFR2011GB02175

PATIENT
  Sex: Male

DRUGS (1)
  1. CLOZAPINE [Suspect]
     Dosage: 375 MG/DAY
     Route: 048
     Dates: start: 20090402

REACTIONS (2)
  - ENURESIS [None]
  - SALIVARY HYPERSECRETION [None]
